FAERS Safety Report 4318586-4 (Version None)
Quarter: 2004Q1

REPORT INFORMATION
  Report Type: 
  Country: None (occurrence: None)
  Receive Date: 20040315
  Receipt Date: 20040303
  Transmission Date: 20041129
  Serious: Yes (Other)
  Sender: FDA-Public Use
  Company Number: 2004197441AU

PATIENT
  Age: 42 Year
  Sex: Female
  Weight: 92 kg

DRUGS (4)
  1. GENORAL(ESTROPIPATE) TABLET [Suspect]
     Indication: HORMONE REPLACEMENT THERAPY
     Dosage: HALF OF 1.25 MG TABLET/DAILY, ORAL
     Route: 048
     Dates: start: 20040101
  2. PRODEINE [Concomitant]
  3. RESPRIM [Concomitant]
  4. LIPITOR [Concomitant]

REACTIONS (6)
  - DIFFICULTY IN WALKING [None]
  - DYSPNOEA [None]
  - EATING DISORDER [None]
  - MOUTH ULCERATION [None]
  - PRURITUS [None]
  - TONGUE ULCERATION [None]
